FAERS Safety Report 14315383 (Version 1)
Quarter: 2017Q4

REPORT INFORMATION
  Report Type: Report from Study
  Country: US (occurrence: US)
  Receive Date: 20171221
  Receipt Date: 20171221
  Transmission Date: 20180321
  Serious: Yes (Hospitalization)
  Sender: FDA-Public Use
  Company Number: US-ACTELION-A-NJ2017-164551

PATIENT
  Age: 80 Year
  Sex: Female

DRUGS (3)
  1. DILTIAZEM. [Concomitant]
     Active Substance: DILTIAZEM
  2. WARFARIN [Concomitant]
     Active Substance: WARFARIN
  3. OPSUMIT [Suspect]
     Active Substance: MACITENTAN
     Indication: PULMONARY ARTERIAL HYPERTENSION
     Dosage: 10 MG, QD
     Route: 048

REACTIONS (3)
  - Catheterisation cardiac [Unknown]
  - Haematoma [Unknown]
  - Aneurysm [Unknown]
